FAERS Safety Report 10383154 (Version 1)
Quarter: 2014Q3

REPORT INFORMATION
  Report Type: Spontaneous
  Country: JP (occurrence: JP)
  Receive Date: 20140813
  Receipt Date: 20140813
  Transmission Date: 20150326
  Serious: No
  Sender: FDA-Public Use
  Company Number: PHHY2009JP072245

PATIENT
  Age: 64 Year
  Sex: Male

DRUGS (3)
  1. GLIVEC [Suspect]
     Active Substance: IMATINIB MESYLATE
  2. GLIVEC [Suspect]
     Active Substance: IMATINIB MESYLATE
  3. TASIGNA [Suspect]
     Active Substance: NILOTINIB
     Indication: CHRONIC MYELOID LEUKAEMIA
     Dates: start: 20091009

REACTIONS (3)
  - Chest discomfort [Unknown]
  - Drug intolerance [Unknown]
  - Pyrexia [Recovered/Resolved]
